FAERS Safety Report 5393784-X (Version None)
Quarter: 2007Q3

REPORT INFORMATION
  Report Type: 
  Country: None (occurrence: None)
  Receive Date: 20070719
  Receipt Date: 20070719
  Transmission Date: 20080115
  Serious: Yes (Hospitalization)
  Sender: FDA-Public Use
  Company Number: None

PATIENT
  Age: 58 Year
  Sex: Male
  Weight: 86.637 kg

DRUGS (14)
  1. SORAFENIB [Suspect]
     Indication: METASTATIC MALIGNANT MELANOMA
     Dosage: 400 MG BID PO
     Route: 048
     Dates: start: 20070530, end: 20070703
  2. TEMOZOLOMIDE [Suspect]
     Indication: METASTATIC MALIGNANT MELANOMA
     Dosage: 305 MG DAILY PO
     Route: 048
     Dates: start: 20070605, end: 20070703
  3. LIPITOR [Concomitant]
  4. ZOLOFT [Concomitant]
  5. ATENOLOL [Concomitant]
  6. LISINOPRIL [Concomitant]
  7. NEXIUM [Concomitant]
  8. ATIVAN [Concomitant]
  9. M.V.I. [Concomitant]
  10. ASPIRIN [Concomitant]
  11. ACETAMINOPHEN [Concomitant]
  12. SENOKOT [Concomitant]
  13. DEXAMETHASONE 0.5MG TAB [Concomitant]
  14. AMBIEN [Concomitant]

REACTIONS (1)
  - INTESTINAL OBSTRUCTION [None]
